FAERS Safety Report 13895644 (Version 9)
Quarter: 2018Q4

REPORT INFORMATION
  Report Type: Spontaneous
  Country: US (occurrence: US)
  Receive Date: 20170823
  Receipt Date: 20181204
  Transmission Date: 20190204
  Serious: No
  Sender: FDA-Public Use
  Company Number: US-PFIZER INC-2016603073

PATIENT
  Age: 70 Year
  Sex: Female
  Weight: 57 kg

DRUGS (12)
  1. VITAMIN A [Concomitant]
     Active Substance: VITAMIN A
     Indication: IMMUNE SYSTEM DISORDER
     Dosage: 8000 IU, 1X/DAY
  2. VITAMIN D3 [Concomitant]
     Active Substance: CHOLECALCIFEROL
     Indication: BONE DISORDER
     Dosage: 1000 IU, UNK
  3. XELJANZ [Suspect]
     Active Substance: TOFACITINIB CITRATE
     Dosage: 10 MG, TWICE A DAY (5 MG, FOUR TIMES DAILY: TWO IN THE MORNING AND TWO IN THE EVENING)
     Route: 048
  4. CYMBALTA [Concomitant]
     Active Substance: DULOXETINE HYDROCHLORIDE
     Indication: DEPRESSION
     Dosage: 60 MG, 1X/DAY
  5. BIOTIN [Concomitant]
     Active Substance: BIOTIN
     Indication: SKIN DISORDER
  6. NEXIUM MUPS [ESOMEPRAZOLE MAGNESIUM] [Concomitant]
     Indication: DYSPEPSIA
     Dosage: 22.3 MG, ONCE DAILY
  7. METHOTREXATE SODIUM. [Concomitant]
     Active Substance: METHOTREXATE SODIUM
     Dosage: UNK
     Dates: start: 200101
  8. BIOTIN [Concomitant]
     Active Substance: BIOTIN
     Indication: HAIR DISORDER
     Dosage: 10 MG, UNK
  9. BIOTIN [Concomitant]
     Active Substance: BIOTIN
     Indication: NAIL DISORDER
  10. XELJANZ [Suspect]
     Active Substance: TOFACITINIB CITRATE
     Indication: RHEUMATOID ARTHRITIS
     Dosage: 5 MG, 2X/DAY
     Route: 048
  11. VITAMIN D3 [Concomitant]
     Active Substance: CHOLECALCIFEROL
     Indication: IMMUNE SYSTEM DISORDER
  12. XELJANZ [Suspect]
     Active Substance: TOFACITINIB CITRATE
     Dosage: 20 MG, DAILY

REACTIONS (3)
  - Product dispensing error [Unknown]
  - Drug ineffective [Unknown]
  - Product use issue [Unknown]
